FAERS Safety Report 20431968 (Version 3)
Quarter: 2022Q1

REPORT INFORMATION
  Report Type: Spontaneous
  Country: TR (occurrence: TR)
  Receive Date: 20220204
  Receipt Date: 20220303
  Transmission Date: 20220424
  Serious: Yes (Death)
  Sender: FDA-Public Use
  Company Number: TR-PFIZER INC-202200153993

PATIENT
  Age: 45 Year
  Sex: Female

DRUGS (3)
  1. AVIBACTAM SODIUM\CEFTAZIDIME [Suspect]
     Active Substance: AVIBACTAM SODIUM\CEFTAZIDIME
     Dosage: UNK
     Dates: start: 20211105
  2. MEROPENEM [Suspect]
     Active Substance: MEROPENEM
     Dosage: UNK
     Dates: start: 20211115
  3. POLYMYXIN B [Suspect]
     Active Substance: POLYMYXIN B
     Indication: Pneumonia klebsiella
     Dosage: UNK
     Route: 042
     Dates: start: 20211111

REACTIONS (1)
  - Death [Fatal]

NARRATIVE: CASE EVENT DATE: 20211121
